FAERS Safety Report 7234592-4 (Version None)
Quarter: 2011Q1

REPORT INFORMATION
  Report Type: 
  Country: None (occurrence: None)
  Receive Date: 20110120
  Receipt Date: 20110110
  Transmission Date: 20110831
  Serious: Yes (Other)
  Sender: FDA-Public Use
  Company Number: US-BIOGENIDEC-2010BI044524

PATIENT
  Age: 50 Year
  Sex: Female

DRUGS (5)
  1. KLONOPIN [Concomitant]
     Indication: DYSKINESIA
  2. VIMPAT [Concomitant]
     Indication: CONVULSION
  3. KLONOPIN [Concomitant]
     Indication: CONVULSION
  4. VIMPAT [Concomitant]
     Indication: DYSKINESIA
  5. TYSABRI [Suspect]
     Indication: MULTIPLE SCLEROSIS
     Route: 042
     Dates: start: 20100219

REACTIONS (2)
  - MYOCLONIC EPILEPSY [None]
  - DENTAL CARIES [None]
